FAERS Safety Report 24570127 (Version 1)
Quarter: 2024Q4

REPORT INFORMATION
  Report Type: Spontaneous
  Country: US (occurrence: US)
  Receive Date: 20241031
  Receipt Date: 20241031
  Transmission Date: 20250114
  Serious: No
  Sender: BIOMARIN
  Company Number: US-BIOMARINAP-US-2024-161390

PATIENT

DRUGS (1)
  1. PALYNZIQ [Suspect]
     Active Substance: PEGVALIASE-PQPZ
     Indication: Product used for unknown indication
     Dosage: 60 MILLIGRAM, QD
     Route: 058

REACTIONS (8)
  - Arthritis [Recovered/Resolved]
  - Arthralgia [Recovered/Resolved]
  - Injection site reaction [Recovered/Resolved]
  - Injection site warmth [Recovered/Resolved]
  - Injection site induration [Recovered/Resolved]
  - Injection site swelling [Recovered/Resolved]
  - Injection site pain [Recovered/Resolved]
  - Drug ineffective [Unknown]
